FAERS Safety Report 6331467-X (Version None)
Quarter: 2009Q3

REPORT INFORMATION
  Report Type: 
  Country: None (occurrence: None)
  Receive Date: 20090827
  Receipt Date: 20090817
  Transmission Date: 20100115
  Serious: Yes (Other)
  Sender: FDA-Public Use
  Company Number: US-PFIZER INC-2009258041

PATIENT
  Sex: Female
  Weight: 68.027 kg

DRUGS (11)
  1. XANAX [Suspect]
     Indication: PANIC DISORDER
     Route: 048
     Dates: start: 19890101
  2. XANAX [Suspect]
     Indication: ANXIETY
  3. XANAX [Suspect]
     Indication: AGORAPHOBIA
  4. XANAX [Suspect]
     Indication: POST-TRAUMATIC STRESS DISORDER
  5. KLONOPIN [Suspect]
     Indication: PANIC DISORDER
     Dosage: FREQUENCY: 2X/DAY,
     Route: 048
     Dates: start: 20090701
  6. KLONOPIN [Suspect]
     Indication: ANXIETY
  7. KLONOPIN [Suspect]
     Indication: AGORAPHOBIA
  8. KLONOPIN [Suspect]
     Indication: POST-TRAUMATIC STRESS DISORDER
  9. LAMICTAL [Concomitant]
  10. SEROQUEL [Concomitant]
  11. RISPERIDONE [Concomitant]

REACTIONS (10)
  - ACTIVITIES OF DAILY LIVING IMPAIRED [None]
  - ANGER [None]
  - ANGINA PECTORIS [None]
  - ANXIETY [None]
  - INSOMNIA [None]
  - MANIA [None]
  - MUSCLE SPASMS [None]
  - RENAL DISORDER [None]
  - URINARY RETENTION [None]
  - VISION BLURRED [None]
